FAERS Safety Report 7719660-2 (Version None)
Quarter: 2011Q3

REPORT INFORMATION
  Report Type: 
  Country: None (occurrence: None)
  Receive Date: 20110830
  Receipt Date: 20110824
  Transmission Date: 20111222
  Serious: Yes (Hospitalization)
  Sender: FDA-Public Use
  Company Number: FI-MERCK-1108FIN00010

PATIENT
  Age: 84 Year
  Sex: Female

DRUGS (7)
  1. ZOPICLONE [Concomitant]
     Route: 048
  2. LANSOPRAZOLE [Concomitant]
     Route: 048
  3. ENALAPRIL MALEATE [Concomitant]
     Route: 048
  4. AMITRIPTYLINE HYDROCHLORIDE [Concomitant]
     Route: 048
  5. FOSAMAX [Suspect]
     Indication: OSTEOPOROSIS
     Route: 048
     Dates: end: 20110101
  6. BISOPROLOL [Concomitant]
     Route: 048
  7. RAMIPRIL [Concomitant]
     Route: 048

REACTIONS (1)
  - FEMUR FRACTURE [None]
